FAERS Safety Report 16861767 (Version 3)
Quarter: 2019Q4

REPORT INFORMATION
  Report Type: Report from Study
  Country: US (occurrence: US)
  Receive Date: 20190927
  Receipt Date: 20191030
  Transmission Date: 20200122
  Serious: No
  Sender: FDA-Public Use
  Company Number: US-AMGEN-USASP2019155987

PATIENT
  Age: 80 Year
  Sex: Female

DRUGS (3)
  1. EVISTA [Concomitant]
     Active Substance: RALOXIFENE HYDROCHLORIDE
     Dosage: UNK
  2. PROLIA [Suspect]
     Active Substance: DENOSUMAB
     Indication: OSTEOPOROSIS POSTMENOPAUSAL
     Dosage: 60 MILLIGRAM, Q6MO
     Route: 065
     Dates: start: 2017
  3. RALOXIFENE. [Concomitant]
     Active Substance: RALOXIFENE
     Dosage: 60 MILLIGRAM, QD

REACTIONS (9)
  - Feeling abnormal [Unknown]
  - Dysstasia [Recovered/Resolved]
  - Sleep disorder due to a general medical condition [Unknown]
  - Fatigue [Unknown]
  - Pain in extremity [Unknown]
  - Pain [Recovered/Resolved]
  - Headache [Recovered/Resolved]
  - Musculoskeletal pain [Unknown]
  - Back pain [Recovered/Resolved]

NARRATIVE: CASE EVENT DATE: 2019
